FAERS Safety Report 9026119 (Version 1)
Quarter: 2013Q1

REPORT INFORMATION
  Report Type: Spontaneous
  Country: IT (occurrence: IT)
  Receive Date: 20130122
  Receipt Date: 20130122
  Transmission Date: 20140127
  Serious: Yes (Death, Hospitalization)
  Sender: FDA-Public Use
  Company Number: IT-ASTRAZENECA-2013SE03622

PATIENT
  Age: 22946 Day
  Sex: Male

DRUGS (6)
  1. BRILIQUE [Suspect]
     Indication: PLATELET AGGREGATION INHIBITION
     Route: 048
     Dates: start: 20121228, end: 20130101
  2. CARDIOASPIRIN [Concomitant]
  3. TORVAST [Concomitant]
     Route: 048
  4. TRIATEC [Concomitant]
     Route: 048
  5. ATENOLOL [Concomitant]
     Route: 048
  6. PLAVIX [Concomitant]

REACTIONS (1)
  - Cerebral haemorrhage [Fatal]
